FAERS Safety Report 9454173 (Version 1)
Quarter: 2013Q3

REPORT INFORMATION
  Report Type: Spontaneous
  Country: US (occurrence: US)
  Receive Date: 20130812
  Receipt Date: 20130812
  Transmission Date: 20140515
  Serious: Yes (Life-Threatening, Hospitalization)
  Sender: FDA-Public Use
  Company Number: US-ACTELION-A-NJ2013-86723

PATIENT
  Age: 65 Year
  Sex: Female

DRUGS (5)
  1. TRACLEER [Suspect]
     Indication: PULMONARY ARTERIAL HYPERTENSION
     Dosage: UNK
     Route: 048
     Dates: start: 20070407
  2. REMODULIN [Concomitant]
     Dosage: 10 MCG/ML CONCENTRATION
     Route: 058
  3. COUMADIN [Concomitant]
     Dosage: 10 MG, UNK
  4. ASPIRIN [Concomitant]
     Dosage: 81 MG, QD
  5. SPIRONOLACTONE [Concomitant]
     Dosage: 100 MG, UNK

REACTIONS (1)
  - Injection site haemorrhage [Unknown]
